FAERS Safety Report 8082043-2 (Version None)
Quarter: 2012Q1

REPORT INFORMATION
  Report Type: 
  Country: None (occurrence: None)
  Receive Date: 20120130
  Receipt Date: 20120120
  Transmission Date: 20120608
  Serious: Yes (Other)
  Sender: FDA-Public Use
  Company Number: US-ASTRAZENECA-2012SE04574

PATIENT
  Age: 74 Year
  Sex: Female

DRUGS (3)
  1. NEXIUM [Suspect]
     Route: 048
  2. NEXIUM [Suspect]
     Route: 048
  3. CRESTOR [Suspect]
     Route: 048

REACTIONS (4)
  - THYROID NEOPLASM [None]
  - BURNING SENSATION [None]
  - DIABETES MELLITUS [None]
  - RENAL CANCER [None]
